FAERS Safety Report 11649245 (Version 3)
Quarter: 2015Q4

REPORT INFORMATION
  Report Type: Report from Study
  Country: US (occurrence: US)
  Receive Date: 20151021
  Receipt Date: 20151123
  Transmission Date: 20160304
  Serious: Yes (Hospitalization)
  Sender: FDA-Public Use
  Company Number: US-ACTELION-A-US2015-120828

PATIENT
  Age: 80 Year
  Sex: Male

DRUGS (3)
  1. MACITENTAN [Suspect]
     Active Substance: MACITENTAN
     Indication: PULMONARY ARTERIAL HYPERTENSION
     Dosage: 10 MG, QD
     Route: 048
     Dates: start: 20150323
  2. LASIX [Concomitant]
     Active Substance: FUROSEMIDE
  3. RIOCIGUAT [Concomitant]
     Active Substance: RIOCIGUAT

REACTIONS (11)
  - Peripheral swelling [Unknown]
  - Dizziness exertional [Unknown]
  - Oedema [Unknown]
  - Swelling face [Unknown]
  - Renal failure [Unknown]
  - Somnolence [Unknown]
  - Dysuria [Unknown]
  - Pulmonary oedema [Unknown]
  - Oedema peripheral [Unknown]
  - Eyelid oedema [Unknown]
  - Swelling [Unknown]

NARRATIVE: CASE EVENT DATE: 201511
